FAERS Safety Report 21790151 (Version 1)
Quarter: 2022Q4

REPORT INFORMATION
  Report Type: Spontaneous
  Country: US (occurrence: None)
  Receive Date: 20221228
  Receipt Date: 20221228
  Transmission Date: 20230113
  Serious: Yes (Other)
  Sender: FDA-Public Use
  Company Number: None

PATIENT
  Age: 80 Year
  Sex: Female

DRUGS (6)
  1. MINOCYCLINE [Suspect]
     Active Substance: MINOCYCLINE HYDROCHLORIDE
     Dosage: FREQUENCY : AS NEEDED;?
     Route: 048
     Dates: start: 20200430, end: 20221223
  2. levothyroxine 25mcg tab [Concomitant]
     Dates: start: 20170605
  3. betamethasone dip 0.05% lotion [Concomitant]
     Dates: start: 20220303
  4. KETOCONAZOLE [Concomitant]
     Active Substance: KETOCONAZOLE
     Dates: start: 20220303
  5. prednisolone acetate 1% ophth [Concomitant]
     Dates: start: 20220907
  6. tobramycin/dexamethasone 0.3%-0.1% ophth [Concomitant]
     Dates: start: 20220830

REACTIONS (5)
  - Pyrexia [None]
  - Rhinorrhoea [None]
  - Chest discomfort [None]
  - Erythema [None]
  - Product quality issue [None]

NARRATIVE: CASE EVENT DATE: 20221222
